FAERS Safety Report 19562083 (Version 5)
Quarter: 2021Q3

REPORT INFORMATION
  Report Type: Report from Study
  Country: US (occurrence: US)
  Receive Date: 20210716
  Receipt Date: 20210831
  Transmission Date: 20211014
  Serious: Yes (Hospitalization, Other)
  Sender: FDA-Public Use
  Company Number: US-GILEAD-2021-0540629

PATIENT
  Age: 11 Year
  Sex: Female
  Weight: 41 kg

DRUGS (5)
  1. TADALAFIL. [Concomitant]
     Active Substance: TADALAFIL
  2. AMBRISENTAN [Suspect]
     Active Substance: AMBRISENTAN
     Indication: RIGHT-TO-LEFT CARDIAC SHUNT
  3. AMBRISENTAN [Suspect]
     Active Substance: AMBRISENTAN
     Indication: PULMONARY HYPERTENSION
     Dosage: 10 MG, QD
     Route: 048
     Dates: start: 20160601
  4. UPTRAVI [Concomitant]
     Active Substance: SELEXIPAG
  5. ADCIRCA [Concomitant]
     Active Substance: TADALAFIL

REACTIONS (3)
  - Off label use [Not Recovered/Not Resolved]
  - Oxygen saturation decreased [Not Recovered/Not Resolved]
  - Haemoptysis [Recovered/Resolved]

NARRATIVE: CASE EVENT DATE: 20160601
